FAERS Safety Report 5015883-4 (Version None)
Quarter: 2006Q2

REPORT INFORMATION
  Report Type: 
  Country: None (occurrence: None)
  Receive Date: 20060601
  Receipt Date: 20060516
  Transmission Date: 20061013
  Serious: Yes (Death, Life-Threatening, Hospitalization)
  Sender: FDA-Public Use
  Company Number: FR-ABBOTT-06P-056-0333281-00

PATIENT
  Age: 62 Year
  Sex: Male

DRUGS (11)
  1. VALPROATE SODIUM [Suspect]
     Indication: DRUG USE FOR UNKNOWN INDICATION
  2. TEMOZOLOMIDE [Interacting]
     Indication: COORDINATION ABNORMAL
     Route: 048
     Dates: start: 20060303, end: 20060307
  3. TEMOZOLOMIDE [Interacting]
     Indication: HEMIPARESIS
  4. TEMOZOLOMIDE [Interacting]
     Indication: OLIGODENDROGLIOMA
  5. CARMUSTINE [Interacting]
     Indication: COORDINATION ABNORMAL
     Route: 042
     Dates: start: 20060303, end: 20060303
  6. CARMUSTINE [Interacting]
     Indication: HEMIPARESIS
  7. CARMUSTINE [Interacting]
     Indication: OLIGODENDROGLIOMA
  8. CEFTAZIDIME PENTAHYDRATE [Concomitant]
     Indication: URINARY TRACT INFECTION
     Route: 042
     Dates: start: 20060228, end: 20060301
  9. CEFTAZIDIME PENTAHYDRATE [Concomitant]
     Route: 042
     Dates: start: 20060301, end: 20060301
  10. METHYLPREDNISOLONE [Concomitant]
     Indication: URINARY TRACT INFECTION
     Route: 048
     Dates: start: 20060301
  11. MANNITOL [Concomitant]
     Indication: URINARY TRACT INFECTION
     Dates: start: 20060301

REACTIONS (16)
  - ADRENAL INSUFFICIENCY [None]
  - DRUG INTERACTION [None]
  - DYSPNOEA [None]
  - FEBRILE BONE MARROW APLASIA [None]
  - FEBRILE NEUTROPENIA [None]
  - LACTIC ACIDOSIS [None]
  - LUNG DISORDER [None]
  - MULTI-ORGAN FAILURE [None]
  - PANCYTOPENIA [None]
  - PNEUMOCOCCAL INFECTION [None]
  - PNEUMOCYSTIS JIROVECI PNEUMONIA [None]
  - RESPIRATORY ALKALOSIS [None]
  - SEPTIC SHOCK [None]
  - SKIN DISCOLOURATION [None]
  - TACHYPNOEA [None]
  - THROMBOCYTOPENIA [None]
